FAERS Safety Report 26205003 (Version 1)
Quarter: 2025Q4

REPORT INFORMATION
  Report Type: Spontaneous
  Country: AU (occurrence: AU)
  Receive Date: 20251227
  Receipt Date: 20251227
  Transmission Date: 20260118
  Serious: Yes (Hospitalization)
  Sender: CSL BEHRING
  Company Number: AU-BEH-2025230136

PATIENT
  Age: 73 Year
  Sex: Male
  Weight: 87.4 kg

DRUGS (1)
  1. HUMAN IMMUNOGLOBULIN G [Suspect]
     Active Substance: HUMAN IMMUNOGLOBULIN G
     Indication: Hypogammaglobulinaemia
     Dosage: 35 G
     Route: 042
     Dates: start: 20250502, end: 20250502

REACTIONS (5)
  - Hypotension [Recovered/Resolved]
  - Chest pain [Recovered/Resolved]
  - Troponin increased [Recovered/Resolved]
  - Acute myocardial infarction [Recovered/Resolved]
  - Infusion related reaction [Recovered/Resolved]
